FAERS Safety Report 7865182-8 (Version None)
Quarter: 2011Q4

REPORT INFORMATION
  Report Type: 
  Country: None (occurrence: None)
  Receive Date: 20111028
  Receipt Date: 20101027
  Transmission Date: 20120403
  Serious: Yes (Hospitalization)
  Sender: FDA-Public Use
  Company Number: US-GLAXOSMITHKLINE-A0889124A

PATIENT
  Age: 72 Year
  Sex: Male

DRUGS (7)
  1. LIPITOR [Concomitant]
  2. THEOPHYLLINE [Concomitant]
  3. SPIRIVA [Concomitant]
  4. RAMIPRIL [Concomitant]
  5. NAPROXEN [Concomitant]
  6. ADVAIR DISKUS 100/50 [Suspect]
     Indication: CHRONIC OBSTRUCTIVE PULMONARY DISEASE
     Dosage: 1PUFF TWICE PER DAY
     Route: 055
     Dates: start: 20020101, end: 20100801
  7. ALTACE [Concomitant]

REACTIONS (1)
  - PNEUMONIA BACTERIAL [None]
